FAERS Safety Report 26215727 (Version 1)
Quarter: 2025Q4

REPORT INFORMATION
  Report Type: Report from Study
  Country: GB (occurrence: GB)
  Receive Date: 20251231
  Receipt Date: 20251231
  Transmission Date: 20260118
  Serious: Yes (Other)
  Sender: CELLTRION
  Company Number: GB-CELLTRION INC.-2025GB044115

PATIENT

DRUGS (2)
  1. INFLIXIMAB-DYYB [Suspect]
     Active Substance: INFLIXIMAB-DYYB
     Indication: Crohn^s disease
     Dosage: 2 X REMSIMA 120MG/1ML SOLUTION FOR INJECTION  PRE-FILLED PENS.  INJECT ONE PRE-FILLED PEN EVERY TWO
     Route: 058
     Dates: start: 202509
  2. INFLIXIMAB-DYYB [Suspect]
     Active Substance: INFLIXIMAB-DYYB
     Dosage: UNK
     Route: 058
     Dates: start: 20251201

REACTIONS (5)
  - Abortion spontaneous [Unknown]
  - Influenza [Unknown]
  - Injection site pain [Unknown]
  - Product dose omission issue [Unknown]
  - Product storage error [Unknown]

NARRATIVE: CASE EVENT DATE: 20251214
